FAERS Safety Report 14007776 (Version 1)
Quarter: 2017Q3

REPORT INFORMATION
  Report Type: Spontaneous
  Country: US (occurrence: US)
  Receive Date: 20170925
  Receipt Date: 20170925
  Transmission Date: 20171128
  Serious: Yes (Other)
  Sender: FDA-Public Use
  Company Number: US-MYLANLABS-2016M1052493

PATIENT
  Sex: Female
  Weight: 58.96 kg

DRUGS (1)
  1. FLUPHENAZINE MYLAN 5 MG TABLET (FLUPHENAZINE HYDROCHLORIDE) [Suspect]
     Active Substance: FLUPHENAZINE HYDROCHLORIDE
     Indication: SCHIZOAFFECTIVE DISORDER
     Dosage: 5 MG, ONCE
     Dates: start: 2012, end: 2012

REACTIONS (1)
  - Neuroleptic malignant syndrome [Recovered/Resolved]

NARRATIVE: CASE EVENT DATE: 2012
